FAERS Safety Report 4403952-9 (Version None)
Quarter: 2004Q3

REPORT INFORMATION
  Report Type: 
  Country: None (occurrence: None)
  Receive Date: 20040719
  Receipt Date: 20040706
  Transmission Date: 20050211
  Serious: Yes (Other)
  Sender: FDA-Public Use
  Company Number: GB-JNJFOC-20040701513

PATIENT
  Age: 60 Year
  Sex: Male

DRUGS (1)
  1. RISPERDAL [Suspect]
     Indication: PSYCHOTIC DISORDER
     Dosage: 2 MG, ORAL
     Route: 048

REACTIONS (3)
  - DELUSION [None]
  - EYE SWELLING [None]
  - SWELLING FACE [None]
